FAERS Safety Report 21125731 (Version 2)
Quarter: 2022Q3

REPORT INFORMATION
  Report Type: Report from Study
  Country: CA (occurrence: CA)
  Receive Date: 20220725
  Receipt Date: 20220907
  Transmission Date: 20221027
  Serious: Yes (Other)
  Sender: FDA-Public Use
  Company Number: CA-JNJFOC-20220741881

PATIENT
  Age: 10 Year
  Sex: Female
  Weight: 71 kg

DRUGS (1)
  1. REMICADE [Suspect]
     Active Substance: INFLIXIMAB
     Indication: Crohn^s disease
     Dosage: EXPIRY DATE: 31-DEC-2024
     Route: 042
     Dates: start: 20190128

REACTIONS (8)
  - Haematochezia [Not Recovered/Not Resolved]
  - Food intolerance [Not Recovered/Not Resolved]
  - Swollen tongue [Recovered/Resolved]
  - Tongue disorder [Recovered/Resolved]
  - Glossodynia [Recovered/Resolved]
  - Abdominal pain upper [Not Recovered/Not Resolved]
  - Inappropriate schedule of product administration [Unknown]
  - Off label use [Unknown]

NARRATIVE: CASE EVENT DATE: 20190128
